FAERS Safety Report 6907291-3 (Version None)
Quarter: 2010Q3

REPORT INFORMATION
  Report Type: 
  Country: None (occurrence: None)
  Receive Date: 20100730
  Receipt Date: 20100715
  Transmission Date: 20110219
  Serious: Yes (Death, Hospitalization)
  Sender: FDA-Public Use
  Company Number: 2009AC000067

PATIENT
  Age: 38 Year
  Sex: Female
  Weight: 76.2043 kg

DRUGS (54)
  1. DIGOXIN [Suspect]
     Dosage: 12.5 MG; QD; PO
     Route: 048
     Dates: start: 20000101
  2. LASIX [Concomitant]
  3. TOPROL-XL [Concomitant]
  4. LISINOPRIL [Concomitant]
  5. ZOLOFT [Concomitant]
  6. AMIDARONE [Concomitant]
  7. ASPIRIN [Concomitant]
  8. COREG [Concomitant]
  9. SULFASALAZINE [Concomitant]
  10. LEVOTHYROXINE [Concomitant]
  11. SPIRIVA [Concomitant]
  12. NASONEX [Concomitant]
  13. ALVERT [Concomitant]
  14. COQ10 [Concomitant]
  15. CALCIUM [Concomitant]
  16. MAGNESIUM [Concomitant]
  17. COUMADIN [Concomitant]
  18. ALDACTONE [Concomitant]
  19. LEXAPRO [Concomitant]
  20. FUROSEMIDE [Concomitant]
  21. TOPROL-XL [Concomitant]
  22. ZOLOFT [Concomitant]
  23. AMIODARONE HCL [Concomitant]
  24. LISINOPRIL [Concomitant]
  25. CARVEDILOL [Concomitant]
  26. SYNTHROID [Concomitant]
  27. CALCIUM [Concomitant]
  28. ZINC [Concomitant]
  29. MAGNESIUM [Concomitant]
  30. POTASSIUM PHOSPHATES [Concomitant]
  31. SULFASALAZINE [Concomitant]
  32. COENZYME Q10 [Concomitant]
  33. ASCORBIC ACID [Concomitant]
  34. VITAMIN B [Concomitant]
  35. COREG [Concomitant]
  36. LEXAPRO [Concomitant]
  37. LISINOPRIL [Concomitant]
  38. AMIODARONE HCL [Concomitant]
  39. ALDACTONE [Concomitant]
  40. LEVOTHYROXINE [Concomitant]
  41. SULFASALAZINE [Concomitant]
  42. SPIRIVA [Concomitant]
  43. NASONEX [Concomitant]
  44. DOPAMINE HCL [Concomitant]
  45. LEVOPHED [Concomitant]
  46. EPINEPHRINE [Concomitant]
  47. LIDOCAINE [Concomitant]
  48. BICARBONATE [Concomitant]
  49. AZULFIDINE [Concomitant]
  50. FOLIC ACID [Concomitant]
  51. PROTONIX [Concomitant]
  52. DOPAMINE HCL [Concomitant]
  53. OXYGEN [Concomitant]
  54. MILRINONE [Concomitant]

REACTIONS (40)
  - ADRENAL ADENOMA [None]
  - ANXIETY [None]
  - ATELECTASIS [None]
  - BRONCHITIS CHRONIC [None]
  - CARDIAC ARREST [None]
  - CARDIOGENIC SHOCK [None]
  - CARDIOMYOPATHY [None]
  - CHRONIC OBSTRUCTIVE PULMONARY DISEASE [None]
  - COLITIS [None]
  - CONGESTIVE CARDIOMYOPATHY [None]
  - CORNEAL DYSTROPHY [None]
  - DEHYDRATION [None]
  - DEPRESSION [None]
  - DYSPHAGIA [None]
  - ECONOMIC PROBLEM [None]
  - EMPHYSEMA [None]
  - FIBROSIS [None]
  - GALLBLADDER DISORDER [None]
  - GASTRITIS [None]
  - HEPATIC STEATOSIS [None]
  - HYPOTENSION [None]
  - IMPAIRED WORK ABILITY [None]
  - INSOMNIA [None]
  - INTRACARDIAC THROMBUS [None]
  - LEFT VENTRICULAR DYSFUNCTION [None]
  - LOSS OF CONSCIOUSNESS [None]
  - MITRAL VALVE INCOMPETENCE [None]
  - MULTIPLE INJURIES [None]
  - PERICARDIAL EFFUSION [None]
  - PNEUMONIA ASPIRATION [None]
  - PULMONARY HYPERTENSION [None]
  - RENAL FAILURE [None]
  - RESPIRATORY ARREST [None]
  - SINUS BRADYCARDIA [None]
  - SINUSITIS [None]
  - SYNCOPE [None]
  - THERAPEUTIC AGENT TOXICITY [None]
  - TRICUSPID VALVE INCOMPETENCE [None]
  - UNRESPONSIVE TO STIMULI [None]
  - VENTRICULAR FIBRILLATION [None]
